FAERS Safety Report 9277332 (Version 1)
Quarter: 2013Q2

REPORT INFORMATION
  Report Type: Spontaneous
  Country: GB (occurrence: GB)
  Receive Date: 20130508
  Receipt Date: 20130510
  Transmission Date: 20140414
  Serious: Yes (Other)
  Sender: FDA-Public Use
  Company Number: GB-PFIZER INC-2003145049GB

PATIENT
  Age: 38 Year
  Sex: Male
  Weight: 74 kg

DRUGS (5)
  1. MOTRIN [Suspect]
     Dosage: UNK, QD
     Route: 048
  2. LAMICTAL [Suspect]
     Indication: EPILEPSY
     Dosage: 125 MG, EVERY MORNING
     Route: 048
  3. LAMICTAL [Suspect]
     Dosage: 100 MG, EVERY NIGHT
     Route: 048
  4. SEROXAT ^NOVO NORDISK^ [Suspect]
     Indication: DEPRESSION
     Dosage: 20 MG, QD
     Route: 048
  5. VALPROATE SODIUM [Concomitant]
     Dosage: 2 G
     Route: 048

REACTIONS (2)
  - Hyponatraemia [Recovered/Resolved]
  - Pathological fracture [Unknown]
